FAERS Safety Report 4653983-9 (Version None)
Quarter: 2005Q2

REPORT INFORMATION
  Report Type: 
  Country: None (occurrence: None)
  Receive Date: 20050504
  Receipt Date: 20050421
  Transmission Date: 20051028
  Serious: Yes (Disabling)
  Sender: FDA-Public Use
  Company Number: HQWYE191922APR05

PATIENT
  Age: 48 Year
  Sex: Male

DRUGS (2)
  1. AMIODARONE HCL [Suspect]
     Indication: ATRIAL FIBRILLATION
     Dosage: ORAL
     Route: 048
     Dates: start: 19990101, end: 20000901
  2. AMIODARONE HCL [Suspect]
     Indication: ATRIAL FLUTTER
     Dosage: ORAL
     Route: 048
     Dates: start: 19990101, end: 20000901

REACTIONS (3)
  - FATIGUE [None]
  - HYPOREFLEXIA [None]
  - MUSCULAR WEAKNESS [None]
